FAERS Safety Report 5571555-9 (Version None)
Quarter: 2007Q4

REPORT INFORMATION
  Report Type: 
  Country: None (occurrence: None)
  Receive Date: 20071221
  Receipt Date: 20071214
  Transmission Date: 20080405
  Serious: No
  Sender: FDA-Public Use
  Company Number: US-ELI_LILLY_AND_COMPANY-US200712003088

PATIENT
  Sex: Female

DRUGS (4)
  1. CYMBALTA [Suspect]
     Indication: ANXIETY
     Dosage: 60 MG, DAILY (1/D)
     Dates: end: 20071201
  2. CYMBALTA [Suspect]
     Dosage: 30 MG, UNK
     Dates: start: 20071201, end: 20071201
  3. ATENOLOL [Concomitant]
     Indication: ARRHYTHMIA
  4. LISINOPRIL [Concomitant]
     Indication: PROPHYLAXIS

REACTIONS (5)
  - ANXIETY [None]
  - BLOOD CHOLESTEROL INCREASED [None]
  - BLOOD GLUCOSE INCREASED [None]
  - HEPATIC ENZYME INCREASED [None]
  - PAIN [None]
